FAERS Safety Report 4599452-6 (Version None)
Quarter: 2005Q1

REPORT INFORMATION
  Report Type: 
  Country: None (occurrence: None)
  Receive Date: 20050303
  Receipt Date: 20050214
  Transmission Date: 20050727
  Serious: Yes (Hospitalization, Other)
  Sender: FDA-Public Use
  Company Number: USA041183122

PATIENT
  Age: 88 Year
  Sex: Female
  Weight: 41 kg

DRUGS (6)
  1. FORTEO [Suspect]
     Indication: OSTEOPOROSIS
     Dates: start: 20040201
  2. FUROSEMIDE [Concomitant]
  3. POTASSIUM CHLORIDE [Concomitant]
  4. DILTIAZEM [Concomitant]
  5. PRILOSEC (OMEPRAZOLE RATIOPHARM) [Concomitant]
  6. XOPENEX [Concomitant]

REACTIONS (6)
  - ASTHMA [None]
  - CARDIAC FAILURE CONGESTIVE [None]
  - OEDEMA PERIPHERAL [None]
  - PHARMACEUTICAL PRODUCT COMPLAINT [None]
  - PULMONARY OEDEMA [None]
  - WEIGHT DECREASED [None]
